FAERS Safety Report 6135087-1 (Version None)
Quarter: 2009Q1

REPORT INFORMATION
  Report Type: 
  Country: None (occurrence: None)
  Receive Date: 20090325
  Receipt Date: 20090308
  Transmission Date: 20090719
  Serious: Yes (Other)
  Sender: FDA-Public Use
  Company Number: 2006S1006894

PATIENT
  Age: 52 Year
  Weight: 70.7611 kg

DRUGS (3)
  1. PHOSPHOSODA GINGER LEMON [Suspect]
     Indication: COLONOSCOPY
     Dosage: 90 ML; TOTAL; PO
     Route: 048
     Dates: start: 20050301, end: 20050302
  2. DIOVAN /01319601/ [Concomitant]
  3. CELEBREX [Concomitant]

REACTIONS (17)
  - AGEUSIA [None]
  - ANAEMIA [None]
  - ASTHENIA [None]
  - DIZZINESS [None]
  - DYSGEUSIA [None]
  - FATIGUE [None]
  - HEADACHE [None]
  - INFLUENZA LIKE ILLNESS [None]
  - INSOMNIA [None]
  - MALAISE [None]
  - MEMORY IMPAIRMENT [None]
  - MENTAL DISORDER [None]
  - MENTAL IMPAIRMENT [None]
  - PRURITUS [None]
  - RASH [None]
  - RENAL FAILURE ACUTE [None]
  - TUBULOINTERSTITIAL NEPHRITIS [None]
